FAERS Safety Report 8920544 (Version 1)
Quarter: 2012Q4

REPORT INFORMATION
  Report Type: Report from Study
  Country: SE (occurrence: SE)
  Receive Date: 20121122
  Receipt Date: 20121122
  Transmission Date: 20130627
  Serious: Yes (Other)
  Sender: FDA-Public Use
  Company Number: SE-SANOFI-AVENTIS-2012SA084984

PATIENT

DRUGS (2)
  1. DOCETAXEL [Suspect]
     Indication: METASTATIC BREAST CANCER
     Dosage: 1-h infusion on day 1
     Route: 042
  2. SUNITINIB [Suspect]
     Indication: METASTATIC BREAST CANCER
     Dosage: for 2 weeks (days 2-15) followed by 1 week off treatment, dose either 37.5 mg or 25 mg
     Route: 048

REACTIONS (1)
  - Cerebral haemorrhage [Recovered/Resolved]
